FAERS Safety Report 4985576-8 (Version None)
Quarter: 2006Q2

REPORT INFORMATION
  Report Type: 
  Country: None (occurrence: None)
  Receive Date: 20060428
  Receipt Date: 20050714
  Transmission Date: 20061013
  Serious: No
  Sender: FDA-Public Use
  Company Number: 200514530US

PATIENT
  Age: 51 Year
  Sex: Female

DRUGS (1)
  1. SEREVENT [Suspect]
     Indication: DRUG USE FOR UNKNOWN INDICATION
     Route: 055
     Dates: start: 20020501, end: 20020101

REACTIONS (4)
  - DYSPNOEA [None]
  - RASH [None]
  - THROAT TIGHTNESS [None]
  - VISION BLURRED [None]
